FAERS Safety Report 7131634-1 (Version None)
Quarter: 2010Q4

REPORT INFORMATION
  Report Type: 
  Country: None (occurrence: None)
  Receive Date: 20101201
  Receipt Date: 20101119
  Transmission Date: 20110411
  Serious: Yes (Hospitalization)
  Sender: FDA-Public Use
  Company Number: JP-ABBOTT-08P-087-0439175-00

PATIENT
  Age: 83 Year
  Sex: Male

DRUGS (7)
  1. LEUPROLIDE ACETATE [Suspect]
     Indication: PROSTATE CANCER STAGE III
     Route: 058
     Dates: start: 20070524
  2. ADALAT CC [Concomitant]
     Indication: HYPERTENSION
     Route: 048
  3. OLMETEC [Concomitant]
     Indication: HYPERTENSION
     Route: 048
  4. COVERSYL [Concomitant]
     Indication: HYPERTENSION
     Route: 048
  5. FERO-GRADUMET [Concomitant]
     Indication: NEPHROGENIC ANAEMIA
     Route: 048
  6. DEPAS [Concomitant]
     Indication: DEPRESSION
     Route: 048
  7. ROCALTROL [Concomitant]
     Indication: RENAL FAILURE CHRONIC
     Route: 065

REACTIONS (1)
  - RENAL FAILURE CHRONIC [None]
